FAERS Safety Report 17540174 (Version 2)
Quarter: 2020Q2

REPORT INFORMATION
  Report Type: Spontaneous
  Country: EG (occurrence: EG)
  Receive Date: 20200313
  Receipt Date: 20200408
  Transmission Date: 20200713
  Serious: Yes (Hospitalization, Other)
  Sender: FDA-Public Use
  Company Number: EG-PFIZER INC-2020105650

PATIENT
  Age: 43 Year
  Sex: Male

DRUGS (4)
  1. FLAGYL [Suspect]
     Active Substance: METRONIDAZOLE\METRONIDAZOLE HYDROCHLORIDE
     Indication: INJURY
     Dosage: 500 MG, UNK
     Route: 042
     Dates: start: 20200115, end: 202001
  2. ANTODINE [CALCIUM CARBONATE\FAMOTIDINE\MAGNESIUM HYDROXIDE] [Suspect]
     Active Substance: CALCIUM CARBONATE\FAMOTIDINE\MAGNESIUM HYDROXIDE
     Indication: GASTROOESOPHAGEAL REFLUX DISEASE
     Dosage: 20 MG, UNK
     Route: 042
     Dates: start: 20200116, end: 202001
  3. ROCEPHIN [Suspect]
     Active Substance: CEFTRIAXONE SODIUM
     Indication: INJURY
     Dosage: 2 G, UNK
     Route: 042
     Dates: start: 20200115, end: 202001
  4. PERFALGAN [Suspect]
     Active Substance: ACETAMINOPHEN
     Dosage: 1 MG, UNK
     Route: 041
     Dates: start: 20200115, end: 202001

REACTIONS (5)
  - Product use in unapproved indication [Unknown]
  - Hyperkalaemia [Recovered/Resolved]
  - Off label use [Unknown]
  - Thrombocytopenia [Recovered/Resolved]
  - Haematemesis [Recovered/Resolved]

NARRATIVE: CASE EVENT DATE: 20200115
